FAERS Safety Report 14292727 (Version 4)
Quarter: 2018Q3

REPORT INFORMATION
  Report Type: Report from Study
  Country: JP (occurrence: JP)
  Receive Date: 20171215
  Receipt Date: 20180730
  Transmission Date: 20181010
  Serious: Yes (Hospitalization)
  Sender: FDA-Public Use
  Company Number: JP-VIFOR (INTERNATIONAL) INC.-VIT-2017-13842

PATIENT
  Age: 81 Year
  Sex: Male
  Weight: 65.3 kg

DRUGS (112)
  1. CARTARETIN [Concomitant]
     Active Substance: CALCIUM CARBONATE
     Route: 048
     Dates: start: 20171129
  2. MIYA?BM [Concomitant]
     Active Substance: CLOSTRIDIUM BUTYRICUM SPORES STRAIN M-55
     Route: 048
  3. WARFARIN POTASSIUM [Concomitant]
     Active Substance: WARFARIN POTASSIUM
     Dosage: 2.0 MG TO 2.25 MG ALTERNATELY
     Route: 048
     Dates: start: 20170713, end: 20170802
  4. WARFARIN POTASSIUM [Concomitant]
     Active Substance: WARFARIN POTASSIUM
     Route: 048
     Dates: start: 20170803, end: 20170809
  5. WARFARIN POTASSIUM [Concomitant]
     Active Substance: WARFARIN POTASSIUM
     Route: 048
     Dates: start: 20170824, end: 20170830
  6. WARFARIN POTASSIUM [Concomitant]
     Active Substance: WARFARIN POTASSIUM
     Route: 048
     Dates: start: 20170921, end: 20171025
  7. NESP [Concomitant]
     Active Substance: DARBEPOETIN ALFA
     Dates: start: 20170210, end: 20170222
  8. NESP [Concomitant]
     Active Substance: DARBEPOETIN ALFA
     Dates: start: 20170325, end: 20170405
  9. FESIN [Concomitant]
     Active Substance: IRON SUCROSE
     Dates: start: 20160723, end: 20160910
  10. EMLA [Concomitant]
     Active Substance: LIDOCAINE\PRILOCAINE
     Indication: PAIN
     Dates: start: 20170413
  11. TAURINE [Concomitant]
     Active Substance: TAURINE
     Route: 048
  12. LOXONIN [Concomitant]
     Active Substance: LOXOPROFEN SODIUM
     Route: 048
     Dates: end: 20171113
  13. CALONAL [Concomitant]
     Active Substance: ACETAMINOPHEN
     Route: 048
     Dates: end: 20160924
  14. WARFARIN POTASSIUM [Concomitant]
     Active Substance: WARFARIN POTASSIUM
     Route: 048
     Dates: start: 20161117
  15. WARFARIN POTASSIUM [Concomitant]
     Active Substance: WARFARIN POTASSIUM
     Route: 048
     Dates: start: 20161208, end: 20161214
  16. WARFARIN POTASSIUM [Concomitant]
     Active Substance: WARFARIN POTASSIUM
     Route: 048
     Dates: start: 20161215, end: 20161221
  17. WARFARIN POTASSIUM [Concomitant]
     Active Substance: WARFARIN POTASSIUM
     Dosage: 1.75 MG TO 2.0 MG ALTERNATELY
     Route: 048
     Dates: start: 20170209, end: 20170222
  18. WARFARIN POTASSIUM [Concomitant]
     Active Substance: WARFARIN POTASSIUM
     Route: 048
     Dates: start: 20170914, end: 20170920
  19. WARFARIN POTASSIUM [Concomitant]
     Active Substance: WARFARIN POTASSIUM
     Route: 048
     Dates: start: 20180118, end: 20180124
  20. WARFARIN POTASSIUM [Concomitant]
     Active Substance: WARFARIN POTASSIUM
     Route: 048
     Dates: start: 20180215, end: 20180221
  21. ZYLORIC [Concomitant]
     Active Substance: ALLOPURINOL
     Route: 048
     Dates: start: 20161101
  22. TSUMURA HOCHUEKKITO [Concomitant]
     Route: 048
     Dates: start: 20161101
  23. HALCION [Concomitant]
     Active Substance: TRIAZOLAM
     Route: 048
     Dates: start: 20161101
  24. CALONAL [Concomitant]
     Active Substance: ACETAMINOPHEN
     Route: 048
     Dates: start: 20171114
  25. REBAMIPIDE [Concomitant]
     Active Substance: REBAMIPIDE
     Route: 048
     Dates: end: 20160924
  26. PLAVIX [Concomitant]
     Active Substance: CLOPIDOGREL BISULFATE
     Route: 048
  27. WARFARIN POTASSIUM [Concomitant]
     Active Substance: WARFARIN POTASSIUM
     Route: 048
     Dates: start: 20160929, end: 20161001
  28. WARFARIN POTASSIUM [Concomitant]
     Active Substance: WARFARIN POTASSIUM
     Route: 048
     Dates: start: 20161110, end: 20161116
  29. WARFARIN POTASSIUM [Concomitant]
     Active Substance: WARFARIN POTASSIUM
     Route: 048
     Dates: end: 20161207
  30. WARFARIN POTASSIUM [Concomitant]
     Active Substance: WARFARIN POTASSIUM
     Dosage: 1.75 MG TO 2.0 MG ALTERNATELY
     Route: 048
     Dates: start: 20161229, end: 20170109
  31. WARFARIN POTASSIUM [Concomitant]
     Active Substance: WARFARIN POTASSIUM
     Dosage: 1.5 MG TO 1.75 MG ALTERNATELY
     Route: 048
     Dates: start: 20170330, end: 20170405
  32. WARFARIN POTASSIUM [Concomitant]
     Active Substance: WARFARIN POTASSIUM
     Dosage: 1.75 MG TO 2.0 MG ALTERNATELY
     Route: 048
     Dates: start: 20170413, end: 20170419
  33. WARFARIN POTASSIUM [Concomitant]
     Active Substance: WARFARIN POTASSIUM
     Dosage: 2.0 MG TO 2.25 MG ALTERNATELY
     Route: 048
     Dates: start: 20170603, end: 20170614
  34. WARFARIN POTASSIUM [Concomitant]
     Active Substance: WARFARIN POTASSIUM
     Route: 048
     Dates: start: 20170615, end: 20170621
  35. WARFARIN POTASSIUM [Concomitant]
     Active Substance: WARFARIN POTASSIUM
     Route: 048
     Dates: start: 20170831, end: 20170913
  36. DOPS [Concomitant]
     Active Substance: DROXIDOPA
     Route: 048
     Dates: start: 20160927, end: 20161001
  37. EURODIN [Concomitant]
     Route: 048
     Dates: start: 20180227, end: 20180312
  38. NERIPROCT [Concomitant]
     Active Substance: DIFLUCORTOLONE VALERATE\LIDOCAINE
  39. VELPHORO [Suspect]
     Active Substance: FERRIC OXYHYDROXIDE
     Route: 048
     Dates: start: 20170829, end: 20171211
  40. TSUMURA SHAKUYAKUKANZOTO [Concomitant]
     Active Substance: HERBALS
     Route: 048
  41. WARFARIN POTASSIUM [Concomitant]
     Active Substance: WARFARIN POTASSIUM
     Dosage: 1.75 MG TO 2.0 MG ALTERNATELY
     Route: 048
     Dates: start: 20170622, end: 20170707
  42. WARFARIN POTASSIUM [Concomitant]
     Active Substance: WARFARIN POTASSIUM
     Route: 048
     Dates: start: 20171123, end: 20171206
  43. WARFARIN POTASSIUM [Concomitant]
     Active Substance: WARFARIN POTASSIUM
     Route: 048
     Dates: start: 20171214, end: 20180117
  44. NESP [Concomitant]
     Active Substance: DARBEPOETIN ALFA
     Dates: end: 20170111
  45. NESP [Concomitant]
     Active Substance: DARBEPOETIN ALFA
     Dates: start: 20170406, end: 20170517
  46. EICOSAPENTAENOIC ACID ETHYL ESTER [Concomitant]
     Active Substance: ICOSAPENT ETHYL
     Route: 048
     Dates: start: 20170228
  47. L?CARTIN FF [Concomitant]
     Active Substance: LEVOCARNITINE
     Dates: start: 20171118, end: 20180208
  48. VELPHORO [Suspect]
     Active Substance: FERRIC OXYHYDROXIDE
     Route: 048
     Dates: start: 20171212
  49. FOSRENOL [Concomitant]
     Active Substance: LANTHANUM CARBONATE
     Indication: HYPERPHOSPHATAEMIA
     Route: 048
  50. DEPAS [Concomitant]
     Active Substance: ETIZOLAM
     Route: 048
     Dates: start: 20161101
  51. VOLTAREN [Concomitant]
     Active Substance: DICLOFENAC SODIUM
  52. WARFARIN POTASSIUM [Concomitant]
     Active Substance: WARFARIN POTASSIUM
     Route: 048
     Dates: start: 20160804, end: 20160831
  53. WARFARIN POTASSIUM [Concomitant]
     Active Substance: WARFARIN POTASSIUM
     Route: 048
     Dates: start: 20160901, end: 20160907
  54. WARFARIN POTASSIUM [Concomitant]
     Active Substance: WARFARIN POTASSIUM
     Route: 048
     Dates: start: 20170110, end: 20170111
  55. WARFARIN POTASSIUM [Concomitant]
     Active Substance: WARFARIN POTASSIUM
     Route: 048
     Dates: start: 20170202, end: 20170208
  56. WARFARIN POTASSIUM [Concomitant]
     Active Substance: WARFARIN POTASSIUM
     Route: 048
     Dates: start: 20170323, end: 20170329
  57. WARFARIN POTASSIUM [Concomitant]
     Active Substance: WARFARIN POTASSIUM
     Dosage: 1.75 MG TO 2.0 MG ALTERNATELY
     Route: 048
     Dates: start: 20170810, end: 20170823
  58. WARFARIN POTASSIUM [Concomitant]
     Active Substance: WARFARIN POTASSIUM
     Route: 048
     Dates: start: 20171207, end: 20171213
  59. WARFARIN POTASSIUM [Concomitant]
     Active Substance: WARFARIN POTASSIUM
     Route: 048
     Dates: start: 20180125, end: 20180214
  60. GASTER [Concomitant]
     Active Substance: FAMOTIDINE
     Indication: PROPHYLAXIS
     Route: 048
     Dates: start: 20161101
  61. ATORVASTATIN CALCIUM. [Concomitant]
     Active Substance: ATORVASTATIN CALCIUM
     Route: 048
     Dates: start: 20170425, end: 20180212
  62. ZOLPIDEM TARTRATE. [Concomitant]
     Active Substance: ZOLPIDEM TARTRATE
     Route: 048
     Dates: start: 20170701, end: 20170703
  63. RESTAMIN KOWA [Concomitant]
     Route: 048
     Dates: start: 20170622
  64. RINDERON VG [Concomitant]
     Active Substance: BETAMETHASONE VALERATE\GENTAMICIN SULFATE
     Dates: start: 20171128, end: 20171130
  65. TAMIFLU [Concomitant]
     Active Substance: OSELTAMIVIR PHOSPHATE
     Indication: PROPHYLAXIS
     Route: 048
     Dates: start: 20171230, end: 20180104
  66. DEPAS [Concomitant]
     Active Substance: ETIZOLAM
     Route: 048
     Dates: end: 20161001
  67. DEPAS [Concomitant]
     Active Substance: ETIZOLAM
     Route: 048
     Dates: start: 20170726
  68. LOXONIN [Concomitant]
     Active Substance: LOXOPROFEN SODIUM
  69. PARIET [Concomitant]
     Active Substance: RABEPRAZOLE SODIUM
     Indication: PROPHYLAXIS
     Route: 048
     Dates: end: 20161001
  70. HIRUDOID [Concomitant]
     Active Substance: GLYCOSAMINOGLYCANS
     Dates: end: 20161112
  71. ACETYLSALICYLIC ACID [Concomitant]
     Active Substance: ASPIRIN
     Route: 048
     Dates: end: 20161001
  72. WARFARIN POTASSIUM [Concomitant]
     Active Substance: WARFARIN POTASSIUM
     Route: 048
     Dates: start: 20160908, end: 20160928
  73. WARFARIN POTASSIUM [Concomitant]
     Active Substance: WARFARIN POTASSIUM
     Route: 048
     Dates: start: 20161103, end: 20161109
  74. WARFARIN POTASSIUM [Concomitant]
     Active Substance: WARFARIN POTASSIUM
     Route: 048
     Dates: start: 20170309, end: 20170315
  75. WARFARIN POTASSIUM [Concomitant]
     Active Substance: WARFARIN POTASSIUM
     Route: 048
     Dates: start: 20170406, end: 20170412
  76. WARFARIN POTASSIUM [Concomitant]
     Active Substance: WARFARIN POTASSIUM
     Route: 048
     Dates: start: 20171109, end: 20171122
  77. WARFARIN POTASSIUM [Concomitant]
     Active Substance: WARFARIN POTASSIUM
     Route: 048
     Dates: start: 20180222, end: 20180228
  78. WARFARIN POTASSIUM [Concomitant]
     Active Substance: WARFARIN POTASSIUM
     Route: 048
     Dates: start: 20180315
  79. AMEZINIUM METILSULFATE [Concomitant]
     Active Substance: AMEZINIUM METILSULFATE
     Route: 048
     Dates: start: 20160927, end: 20161001
  80. NESP [Concomitant]
     Active Substance: DARBEPOETIN ALFA
     Dates: start: 20170112, end: 20170209
  81. NESP [Concomitant]
     Active Substance: DARBEPOETIN ALFA
     Dates: start: 20170223, end: 20170324
  82. NESP [Concomitant]
     Active Substance: DARBEPOETIN ALFA
     Dates: start: 20170518, end: 20170719
  83. NESP [Concomitant]
     Active Substance: DARBEPOETIN ALFA
     Dates: start: 20170720
  84. EFFORTIL [Concomitant]
     Active Substance: ETILEFRINE HYDROCHLORIDE
     Dosage: 10?30 MG PER WEEK APPROPRIATE AMOUNT
  85. VASOLAN [Concomitant]
     Active Substance: VERAPAMIL HYDROCHLORIDE
     Route: 048
     Dates: start: 20180118
  86. LIPOCLIN [Concomitant]
     Route: 048
     Dates: start: 20180213
  87. VELPHORO [Suspect]
     Active Substance: FERRIC OXYHYDROXIDE
     Indication: HYPERPHOSPHATAEMIA
     Route: 048
     Dates: start: 20160824, end: 20161115
  88. REBAMIPIDE [Concomitant]
     Active Substance: REBAMIPIDE
     Route: 048
     Dates: start: 20170627
  89. WARFARIN POTASSIUM [Concomitant]
     Active Substance: WARFARIN POTASSIUM
     Route: 048
     Dates: start: 20161101, end: 20161102
  90. WARFARIN POTASSIUM [Concomitant]
     Active Substance: WARFARIN POTASSIUM
     Dosage: 1.25 MG TO 1.5 MG ALTERNATELY
     Route: 048
     Dates: start: 20170316, end: 20170322
  91. WARFARIN POTASSIUM [Concomitant]
     Active Substance: WARFARIN POTASSIUM
     Route: 048
     Dates: start: 20170420, end: 20170602
  92. WARFARIN POTASSIUM [Concomitant]
     Active Substance: WARFARIN POTASSIUM
     Route: 048
     Dates: start: 20170708, end: 20170712
  93. ZYLORIC [Concomitant]
     Active Substance: ALLOPURINOL
     Route: 048
     Dates: end: 20170327
  94. ZYLORIC [Concomitant]
     Active Substance: ALLOPURINOL
     Route: 048
     Dates: start: 20170425
  95. SELECTOL [Concomitant]
     Active Substance: CELIPROLOL
     Route: 048
     Dates: start: 20161101, end: 20180108
  96. MINOFIT [Concomitant]
     Active Substance: CYSTEINE\GLYCINE\GLYCYRRHIZIN
  97. METHYCOBAL [Concomitant]
     Active Substance: METHYLCOBALAMIN
     Route: 048
     Dates: start: 20170523
  98. VELPHORO [Suspect]
     Active Substance: FERRIC OXYHYDROXIDE
     Route: 048
     Dates: start: 20161116, end: 20170828
  99. CARTARETIN [Concomitant]
     Active Substance: CALCIUM CARBONATE
     Indication: HYPERPHOSPHATAEMIA
     Route: 048
     Dates: end: 20161103
  100. WARFARIN POTASSIUM [Concomitant]
     Active Substance: WARFARIN POTASSIUM
     Route: 048
     Dates: start: 20161222, end: 20161228
  101. WARFARIN POTASSIUM [Concomitant]
     Active Substance: WARFARIN POTASSIUM
     Dosage: 1.5 MG TO 1.75 MG ALTERNATELY
     Route: 048
     Dates: start: 20170112, end: 20170201
  102. WARFARIN POTASSIUM [Concomitant]
     Active Substance: WARFARIN POTASSIUM
     Route: 048
     Dates: start: 20170223, end: 20170301
  103. WARFARIN POTASSIUM [Concomitant]
     Active Substance: WARFARIN POTASSIUM
     Dosage: 1.5 MG TO 1.75 MG ALTERNATELY
     Route: 048
     Dates: start: 20170302, end: 20170308
  104. WARFARIN POTASSIUM [Concomitant]
     Active Substance: WARFARIN POTASSIUM
     Route: 048
     Dates: start: 20171026, end: 20171101
  105. WARFARIN POTASSIUM [Concomitant]
     Active Substance: WARFARIN POTASSIUM
     Route: 048
     Dates: start: 20171102, end: 20171108
  106. WARFARIN POTASSIUM [Concomitant]
     Active Substance: WARFARIN POTASSIUM
     Route: 048
     Dates: start: 20180301, end: 20180314
  107. EURODIN [Concomitant]
     Route: 048
     Dates: start: 20161001, end: 20161001
  108. ANTEBATE [Concomitant]
     Active Substance: BETAMETHASONE DIPROPIONATE
     Dates: start: 20161115
  109. NESP [Concomitant]
     Active Substance: DARBEPOETIN ALFA
     Dates: end: 20160917
  110. NESP [Concomitant]
     Active Substance: DARBEPOETIN ALFA
     Dates: start: 20160924
  111. FESIN [Concomitant]
     Active Substance: IRON SUCROSE
     Dates: start: 20180224, end: 20180414
  112. FEBURIC [Concomitant]
     Active Substance: FEBUXOSTAT
     Route: 048
     Dates: start: 20170328, end: 20170424

REACTIONS (6)
  - Stomatitis [Recovered/Resolved]
  - Vitamin C deficiency [Not Recovered/Not Resolved]
  - Blood pressure increased [Recovered/Resolved]
  - Abdominal pain upper [Recovered/Resolved]
  - Cardiac failure congestive [Recovered/Resolved]
  - Nausea [Recovered/Resolved]

NARRATIVE: CASE EVENT DATE: 20161110
